FAERS Safety Report 22048728 (Version 1)
Quarter: 2023Q1

REPORT INFORMATION
  Report Type: Spontaneous
  Country: US (occurrence: US)
  Receive Date: 20230301
  Receipt Date: 20230301
  Transmission Date: 20230418
  Serious: No
  Sender: FDA-Public Use
  Company Number: US-GSKCCFUS-Case-01635393_AE-92336

PATIENT
  Age: 9 Month
  Weight: 9 kg

DRUGS (1)
  1. FLOVENT HFA [Suspect]
     Active Substance: FLUTICASONE PROPIONATE
     Indication: Product used for unknown indication
     Dosage: 2 PUFF(S), BID, 110MCG
     Route: 055

REACTIONS (2)
  - Product prescribing issue [Unknown]
  - Prescribed overdose [Unknown]
